FAERS Safety Report 5055502-4 (Version None)
Quarter: 2006Q3

REPORT INFORMATION
  Report Type: 
  Country: None (occurrence: None)
  Receive Date: 20060717
  Receipt Date: 20060717
  Transmission Date: 20061208
  Serious: Yes (Hospitalization)
  Sender: FDA-Public Use
  Company Number: None

PATIENT
  Age: 88 Year
  Sex: Female

DRUGS (2)
  1. MIDAZOLAM HYDROCHLORIDE [Suspect]
     Indication: SEDATION
     Dosage: 1 MG OTO
     Dates: start: 20060220
  2. FENTANYL [Suspect]
     Indication: SEDATION
     Dosage: 150 MCG OTO
     Dates: start: 20060220

REACTIONS (8)
  - ANXIETY [None]
  - FEELING JITTERY [None]
  - HYPERHIDROSIS [None]
  - MOVEMENT DISORDER [None]
  - MUSCLE SPASMS [None]
  - PROCEDURAL COMPLICATION [None]
  - RESTLESSNESS [None]
  - TREMOR [None]
